FAERS Safety Report 5505702-1 (Version None)
Quarter: 2007Q4

REPORT INFORMATION
  Report Type: 
  Country: None (occurrence: None)
  Receive Date: 20071102
  Receipt Date: 20071022
  Transmission Date: 20080405
  Serious: Yes (Other)
  Sender: FDA-Public Use
  Company Number: US-PFIZER INC-2007081011

PATIENT
  Age: 10 Year
  Sex: Female

DRUGS (2)
  1. GEODON [Suspect]
     Dosage: DAILY DOSE:120MG
  2. LISDEXAMFETAMINE DIMESYLATE [Interacting]
     Indication: ATTENTION DEFICIT/HYPERACTIVITY DISORDER

REACTIONS (8)
  - ATTENTION DEFICIT/HYPERACTIVITY DISORDER [None]
  - DRUG INEFFECTIVE [None]
  - DRUG INTERACTION [None]
  - FATIGUE [None]
  - HALLUCINATION, AUDITORY [None]
  - MOVEMENT DISORDER [None]
  - MUSCLE DISORDER [None]
  - TIC [None]
